FAERS Safety Report 9419650 (Version 1)
Quarter: 2013Q3

REPORT INFORMATION
  Report Type: Spontaneous
  Country: FR (occurrence: FR)
  Receive Date: 20130725
  Receipt Date: 20130725
  Transmission Date: 20140515
  Serious: Yes (Death)
  Sender: FDA-Public Use
  Company Number: PHHY2013FR078453

PATIENT
  Age: 70 Year
  Sex: Male

DRUGS (12)
  1. NEORAL [Suspect]
     Indication: RENAL TRANSPLANT
     Route: 048
  2. IMUREL [Suspect]
     Indication: RENAL TRANSPLANT
     Dosage: 50 MG, QD
     Route: 048
  3. AMLOR [Concomitant]
  4. COLCHICINE [Concomitant]
  5. EUPRESSYL [Concomitant]
  6. FLUDEX [Concomitant]
  7. KARDEGIC [Concomitant]
  8. LASILIX [Concomitant]
  9. NITRIDERM [Concomitant]
  10. TAHOR [Concomitant]
  11. TENORMINE [Concomitant]
  12. DAFALGAN [Concomitant]

REACTIONS (4)
  - Pancreatitis [Fatal]
  - Abdominal pain [Fatal]
  - Vomiting [Fatal]
  - Abdominal distension [Fatal]
